FAERS Safety Report 5241070-0 (Version None)
Quarter: 2007Q1

REPORT INFORMATION
  Report Type: 
  Country: None (occurrence: None)
  Receive Date: 20070214
  Receipt Date: 20070214
  Transmission Date: 20070707
  Serious: Yes (Other)
  Sender: FDA-Public Use
  Company Number: None

PATIENT
  Age: 66 Year
  Sex: Female
  Weight: 68.0396 kg

DRUGS (1)
  1. FEMARA [Suspect]
     Indication: BREAST CANCER
     Dosage: 2.5    ONCE A DAY
     Dates: start: 20060601, end: 20070213

REACTIONS (2)
  - BLOOD PRESSURE INCREASED [None]
  - CONDITION AGGRAVATED [None]
